FAERS Safety Report 14320158 (Version 2)
Quarter: 2018Q1

REPORT INFORMATION
  Report Type: Spontaneous
  Country: DE (occurrence: DE)
  Receive Date: 20171222
  Receipt Date: 20180129
  Transmission Date: 20180509
  Serious: Yes (Hospitalization)
  Sender: FDA-Public Use
  Company Number: DE-TEVA-2017-DE-834972

PATIENT
  Age: 72 Year
  Sex: Female

DRUGS (15)
  1. RISPERIDONE. [Suspect]
     Active Substance: RISPERIDONE
     Dosage: DOSAGE FORM: UNSPECIFIED
     Route: 048
     Dates: start: 20161109, end: 20161128
  2. PANTOZOL [Concomitant]
     Active Substance: PANTOPRAZOLE SODIUM
     Dosage: DOSAGE FORM: UNKNOWN
     Route: 048
  3. RISPERIDONE. [Suspect]
     Active Substance: RISPERIDONE
     Indication: DELUSION
     Dosage: DOSAGE FORM: UNSPECIFIED
     Route: 048
     Dates: start: 20161129, end: 20161130
  4. EZETROL [Concomitant]
     Active Substance: EZETIMIBE
     Dosage: DOSAGE FORM: UNSPECIFIED
     Route: 048
  5. BUPROPION. [Interacting]
     Active Substance: BUPROPION
     Indication: PRODUCT USED FOR UNKNOWN INDICATION
     Dosage: DOSAGE FORM: UNSPECIFIED
     Route: 048
     Dates: start: 20161117, end: 20161229
  6. RISPERIDONE. [Suspect]
     Active Substance: RISPERIDONE
     Dosage: DOSAGE FORM: UNSPECIFIED
     Route: 048
     Dates: start: 20160920, end: 20161010
  7. LORAZEPAM. [Concomitant]
     Active Substance: LORAZEPAM
     Dosage: DOSAGE FORM: UNSPECIFIED
     Route: 048
     Dates: start: 20160916
  8. FELODIPINE. [Concomitant]
     Active Substance: FELODIPINE
     Dosage: DOSAGE FORM: UNSPECIFIED
     Route: 048
  9. RISPERIDONE. [Suspect]
     Active Substance: RISPERIDONE
     Dosage: DOSAGE FORM: UNSPECIFIED
     Route: 048
     Dates: start: 20161201, end: 20161204
  10. BISOPROLOL [Concomitant]
     Active Substance: BISOPROLOL
     Dosage: DOSAGE FORM: UNSPECIFIED
     Route: 048
  11. HCT [Concomitant]
     Active Substance: HYDROCHLOROTHIAZIDE
     Dosage: DOSAGE FORM: UNSPECIFIED
     Route: 048
  12. OXYCODON [Concomitant]
     Active Substance: OXYCODONE
     Dosage: DOSAGE FORM: UNSPECIFIED
     Route: 048
  13. THYRONAJOD [Concomitant]
     Active Substance: LEVOTHYROXINE SODIUM\POTASSIUM IODIDE
     Dosage: DOSAGE FORM: UNSPECIFIED
     Route: 048
  14. RAMIPRIL. [Concomitant]
     Active Substance: RAMIPRIL
     Dosage: DOSAGE FORM: UNSPECIFIED
     Route: 048
  15. ASPIRIN. [Concomitant]
     Active Substance: ASPIRIN
     Dosage: DOSAGE FORM: UNSPECIFIED
     Route: 048

REACTIONS (5)
  - Off label use [Unknown]
  - Product use in unapproved indication [Unknown]
  - Drug interaction [Recovered/Resolved]
  - Extrapyramidal disorder [Recovered/Resolved]
  - Parkinsonism [Recovered/Resolved]
